FAERS Safety Report 9680360 (Version 2)
Quarter: 2013Q4

REPORT INFORMATION
  Report Type: Spontaneous
  Country: FR (occurrence: FR)
  Receive Date: 20131111
  Receipt Date: 20131111
  Transmission Date: 20140711
  Serious: Yes (Hospitalization, Disabling, Other)
  Sender: FDA-Public Use
  Company Number: FR-JNJFOC-20130913622

PATIENT
  Age: 60 Year
  Sex: Female

DRUGS (5)
  1. RISPERDALORO [Suspect]
     Indication: PRODUCT USED FOR UNKNOWN INDICATION
     Route: 048
     Dates: start: 20130904
  2. SEROPRAM [Suspect]
     Indication: PRODUCT USED FOR UNKNOWN INDICATION
     Route: 048
     Dates: start: 20130904, end: 20130913
  3. HAVLANE [Concomitant]
     Route: 048
     Dates: start: 20130904
  4. SERESTA [Concomitant]
     Route: 048
     Dates: start: 20130904
  5. TRANXENE [Concomitant]
     Route: 048
     Dates: start: 20130904

REACTIONS (3)
  - Cataract [Unknown]
  - Corneal erosion [Unknown]
  - Angle closure glaucoma [Recovering/Resolving]
